FAERS Safety Report 19518921 (Version 1)
Quarter: 2021Q3

REPORT INFORMATION
  Report Type: Other
  Country: US (occurrence: US)
  Receive Date: 20210712
  Receipt Date: 20210712
  Transmission Date: 20211014
  Serious: Yes (Other)
  Sender: FDA-Public Use
  Company Number: US-ROCHE-2258703

PATIENT

DRUGS (2)
  1. CAPECITABINE. [Suspect]
     Active Substance: CAPECITABINE
     Indication: NEOPLASM
     Dosage: 750?1000 MG/M2 ON DAYS 14/21 OF A 21 DAY TREATMENT CYCLE
     Route: 048
  2. CB?839 [Suspect]
     Active Substance: TELAGLENASTAT
     Indication: NEOPLASM
     Dosage: 400? 800 MG
     Route: 048

REACTIONS (11)
  - Decreased appetite [Unknown]
  - Vomiting [Unknown]
  - Alanine aminotransferase increased [Unknown]
  - Aspartate aminotransferase increased [Unknown]
  - Hypokalaemia [Unknown]
  - Lymphocyte count decreased [Unknown]
  - Diarrhoea [Unknown]
  - Hyperkalaemia [Unknown]
  - Palmar-plantar erythrodysaesthesia syndrome [Unknown]
  - Anaemia [Unknown]
  - Hypophosphataemia [Unknown]
